FAERS Safety Report 26098343 (Version 1)
Quarter: 2025Q4

REPORT INFORMATION
  Report Type: Spontaneous
  Country: QA (occurrence: QA)
  Receive Date: 20251127
  Receipt Date: 20251127
  Transmission Date: 20260117
  Serious: Yes (Other)
  Sender: ROCHE
  Company Number: QA-ROCHE-10000437505

PATIENT

DRUGS (1)
  1. TECENTRIQ [Suspect]
     Active Substance: ATEZOLIZUMAB
     Indication: Product used for unknown indication
     Route: 065

REACTIONS (5)
  - Hepatic cyst [Unknown]
  - Tumour thrombosis [Unknown]
  - Portal vein thrombosis [Unknown]
  - Portosplenomesenteric venous thrombosis [Unknown]
  - Portal vein cavernous transformation [Unknown]
